FAERS Safety Report 9260421 (Version 1)
Quarter: 2013Q2

REPORT INFORMATION
  Report Type: Report from Study
  Country: US (occurrence: US)
  Receive Date: 20130429
  Receipt Date: 20130429
  Transmission Date: 20140414
  Serious: Yes (Hospitalization)
  Sender: FDA-Public Use
  Company Number: US-ROCHE-1108884

PATIENT
  Age: 57 Year
  Sex: Female

DRUGS (6)
  1. PEGASYS [Suspect]
     Indication: CHRONIC HEPATITIS C
     Route: 058
     Dates: start: 20120821
  2. TELAPREVIR [Suspect]
     Indication: CHRONIC HEPATITIS C
     Dosage: 2 TABLETS TID
     Route: 048
     Dates: start: 20120821
  3. RIBAVIRIN [Suspect]
     Indication: CHRONIC HEPATITIS C
     Route: 048
     Dates: start: 20120821
  4. VALTREX [Concomitant]
     Indication: RENAL DISORDER
  5. METFORMIN [Concomitant]
     Indication: RENAL DISORDER
  6. LOSARTAN [Concomitant]
     Indication: RENAL DISORDER

REACTIONS (28)
  - Paraesthesia [Unknown]
  - Hypoaesthesia [Unknown]
  - Chills [Unknown]
  - Myalgia [Unknown]
  - Headache [Recovering/Resolving]
  - Rash [Recovering/Resolving]
  - Pruritus [Recovered/Resolved]
  - Breast swelling [Unknown]
  - Pruritus [Unknown]
  - Hordeolum [Recovered/Resolved]
  - Headache [Unknown]
  - Injection site pruritus [Unknown]
  - Decreased appetite [Unknown]
  - Diarrhoea [Unknown]
  - Fatigue [Unknown]
  - Dysgeusia [Unknown]
  - Glossodynia [Unknown]
  - Restlessness [Unknown]
  - Insomnia [Unknown]
  - Mood swings [Unknown]
  - Anorectal discomfort [Unknown]
  - Fatigue [Unknown]
  - Appetite disorder [Unknown]
  - Asthenia [Unknown]
  - Weight decreased [Unknown]
  - Pain [Unknown]
  - Eye disorder [Unknown]
  - Alopecia [Unknown]
